FAERS Safety Report 9309432 (Version 1)
Quarter: 2013Q2

REPORT INFORMATION
  Report Type: Spontaneous
  Country: US (occurrence: US)
  Receive Date: 20130525
  Receipt Date: 20130525
  Transmission Date: 20140414
  Serious: No
  Sender: FDA-Public Use
  Company Number: US-BRISTOL-MYERS SQUIBB COMPANY-18584946

PATIENT
  Age: 75 Year
  Sex: Female
  Weight: 66.21 kg

DRUGS (8)
  1. BYDUREON 2MG VIAL + SYRINGE [Suspect]
     Indication: TYPE 2 DIABETES MELLITUS
     Route: 058
     Dates: start: 20121012
  2. PRILOSEC [Concomitant]
     Indication: GASTROOESOPHAGEAL REFLUX DISEASE
     Route: 048
  3. LISINOPRIL [Concomitant]
     Indication: HYPERTENSION
     Route: 048
  4. GABAPENTIN [Concomitant]
     Indication: DIABETIC NEUROPATHY
     Route: 048
  5. VENTOLIN                                /SCH/ [Concomitant]
  6. ACETAMINOPHEN [Concomitant]
  7. HYDROCODONE [Concomitant]
  8. HYDROCHLOROTHIAZIDE [Concomitant]
     Indication: OEDEMA PERIPHERAL
     Route: 048
     Dates: start: 20130129

REACTIONS (3)
  - Local swelling [Unknown]
  - Abdominal pain upper [Not Recovered/Not Resolved]
  - Nausea [Not Recovered/Not Resolved]
